FAERS Safety Report 8393326-0 (Version None)
Quarter: 2012Q2

REPORT INFORMATION
  Report Type: 
  Country: None (occurrence: None)
  Receive Date: 20120529
  Receipt Date: 20120515
  Transmission Date: 20120825
  Serious: No
  Sender: FDA-Public Use
  Company Number: US-B.I. PHARMACEUTICALS,INC./RIDGEFIELD-2012-BP-10866BP

PATIENT
  Sex: Male

DRUGS (18)
  1. LOTENSIN [Concomitant]
     Indication: HYPERTENSION
     Dosage: 40 MG
     Route: 048
  2. PROMETHAZINE [Concomitant]
     Dosage: 75 MG
     Route: 048
  3. BENAZEPRIL HYDROCHLORIDE [Concomitant]
     Indication: HYPERTENSION
     Dosage: 10 MG
     Route: 048
  4. KLOR-CON [Concomitant]
     Indication: SUPPLEMENTATION THERAPY
     Dosage: 80 MEQ
     Route: 048
  5. LYRICA [Concomitant]
     Indication: BACK PAIN
     Dosage: 100 MG
     Route: 048
  6. SOMA [Concomitant]
     Indication: BACK PAIN
  7. COMBIVENT [Suspect]
     Indication: EMPHYSEMA
     Dosage: 4 PUF
     Route: 055
     Dates: start: 20050101
  8. DUONEB [Concomitant]
     Indication: EMPHYSEMA
     Route: 055
  9. MS CONTIN [Concomitant]
     Indication: BACK PAIN
     Dosage: 480 MG
     Route: 048
  10. NORVASC [Concomitant]
     Indication: HYPERTENSION
     Dosage: 5 MG
     Route: 048
  11. PREDNISONE [Concomitant]
     Indication: PULMONARY FIBROSIS
     Dosage: 40 MG
     Route: 048
  12. INSULIN [Concomitant]
     Indication: DIABETES MELLITUS
     Route: 058
  13. LASIX [Concomitant]
     Indication: CARDIAC FAILURE CONGESTIVE
     Dosage: 240 MG
     Route: 048
  14. HYDROCODONE BITARTRATE [Concomitant]
     Indication: BACK PAIN
     Route: 048
  15. OXYGEN [Concomitant]
     Indication: EMPHYSEMA
     Route: 055
  16. HYDRALAZINE HCL [Concomitant]
     Indication: HYPERTENSION
     Dosage: 10 MG
     Route: 048
  17. LASIX [Concomitant]
     Dosage: 40 MG
     Route: 048
  18. PROAIR HFA [Concomitant]
     Indication: EMPHYSEMA
     Route: 055

REACTIONS (1)
  - PNEUMONIA [None]
